FAERS Safety Report 5563727-4 (Version None)
Quarter: 2007Q4

REPORT INFORMATION
  Report Type: 
  Country: None (occurrence: None)
  Receive Date: 20071217
  Receipt Date: 20071023
  Transmission Date: 20080405
  Serious: No
  Sender: FDA-Public Use
  Company Number: US-ASTRAZENECA-2007UW19559

PATIENT
  Age: 70 Year
  Sex: Male
  Weight: 62.6 kg

DRUGS (6)
  1. CRESTOR [Suspect]
     Indication: BLOOD CHOLESTEROL INCREASED
     Route: 048
     Dates: start: 20070801, end: 20070101
  2. CRESTOR [Suspect]
     Route: 048
     Dates: start: 20070101
  3. TOPROL-XL [Concomitant]
  4. ASPIRIN [Concomitant]
  5. COENZYME Q10 [Concomitant]
  6. VITAMINS [Concomitant]

REACTIONS (3)
  - CHEST DISCOMFORT [None]
  - POLLAKIURIA [None]
  - STOMACH DISCOMFORT [None]
